FAERS Safety Report 9029584 (Version 2)
Quarter: 2013Q2

REPORT INFORMATION
  Report Type: Spontaneous
  Country: US (occurrence: US)
  Receive Date: 20130125
  Receipt Date: 20130508
  Transmission Date: 20140414
  Serious: Yes (Hospitalization, Other)
  Sender: FDA-Public Use
  Company Number: US-009507513-1301USA009280

PATIENT
  Sex: Male

DRUGS (1)
  1. PRINIVIL [Suspect]
     Dosage: UNK
     Route: 048

REACTIONS (5)
  - Gastric lavage [Unknown]
  - Hospitalisation [Unknown]
  - Fluid replacement [Unknown]
  - Accidental exposure to product [Unknown]
  - Overdose [Unknown]
